FAERS Safety Report 8005317-X (Version None)
Quarter: 2011Q4

REPORT INFORMATION
  Report Type: 
  Country: None (occurrence: None)
  Receive Date: 20111223
  Receipt Date: 20111216
  Transmission Date: 20120403
  Serious: Yes (Death, Life-Threatening)
  Sender: FDA-Public Use
  Company Number: FR-CELGENEUS-056-50794-11122238

PATIENT
  Sex: Male

DRUGS (2)
  1. VIDAZA [Suspect]
     Dosage: 120 MILLIGRAM
     Route: 058
     Dates: start: 20111121, end: 20111127
  2. LEVOTHYROXINE SODIUM [Concomitant]
     Route: 065

REACTIONS (3)
  - INTESTINAL HAEMORRHAGE [None]
  - LUNG DISORDER [None]
  - MULTI-ORGAN FAILURE [None]
